FAERS Safety Report 8436553-6 (Version None)
Quarter: 2012Q2

REPORT INFORMATION
  Report Type: 
  Country: None (occurrence: None)
  Receive Date: 20120614
  Receipt Date: 20120608
  Transmission Date: 20120825
  Serious: Yes (Hospitalization, Other)
  Sender: FDA-Public Use
  Company Number: US-AMGEN-USASP2012036191

PATIENT
  Age: 78 Year
  Sex: Male

DRUGS (1)
  1. XGEVA [Suspect]
     Indication: METASTASES TO BONE
     Dosage: 120 MG, QMO
     Route: 058
     Dates: start: 20120201, end: 20120401

REACTIONS (5)
  - CONVULSION [None]
  - INFECTION [None]
  - HYPOAESTHESIA [None]
  - HYPOCALCAEMIA [None]
  - PARAESTHESIA [None]
